FAERS Safety Report 20861841 (Version 2)
Quarter: 2022Q3

REPORT INFORMATION
  Report Type: Spontaneous
  Country: CO (occurrence: CO)
  Receive Date: 20220523
  Receipt Date: 20220810
  Transmission Date: 20221027
  Serious: Yes (Hospitalization)
  Sender: FDA-Public Use
  Company Number: CO-SA-SAC20220520000699

PATIENT
  Sex: Male

DRUGS (2)
  1. PRALUENT [Suspect]
     Active Substance: ALIROCUMAB
     Indication: Type IIa hyperlipidaemia
     Dosage: UNK
     Route: 065
  2. INSULIN NOS [Concomitant]
     Active Substance: INSULIN NOS
     Dosage: UNK, BID (APPLIES TWO TYPES OF INSULIN, ONE IN THE MORNING AND ONE AT NIGHT)

REACTIONS (6)
  - Dyspnoea [Unknown]
  - Feeling cold [Unknown]
  - Chills [Unknown]
  - Pleural effusion [Unknown]
  - Hypertension [Unknown]
  - Blood glucose increased [Unknown]
